FAERS Safety Report 24936975 (Version 1)
Quarter: 2025Q1

REPORT INFORMATION
  Report Type: Spontaneous
  Country: SE (occurrence: SE)
  Receive Date: 20250206
  Receipt Date: 20250206
  Transmission Date: 20250409
  Serious: Yes (Disabling)
  Sender: PFIZER
  Company Number: None

PATIENT
  Age: 62 Year
  Sex: Female

DRUGS (1)
  1. ESTRADIOL [Suspect]
     Active Substance: ESTRADIOL
     Indication: Atrophic vulvovaginitis
     Dates: start: 2023, end: 2023

REACTIONS (2)
  - Polymers allergy [Recovered/Resolved with Sequelae]
  - Burning sensation [Recovered/Resolved with Sequelae]

NARRATIVE: CASE EVENT DATE: 20230101
